FAERS Safety Report 13557291 (Version 1)
Quarter: 2017Q2

REPORT INFORMATION
  Report Type: Spontaneous
  Country: US (occurrence: US)
  Receive Date: 20170517
  Receipt Date: 20170517
  Transmission Date: 20170830
  Serious: No
  Sender: FDA-Public Use
  Company Number: None

PATIENT
  Age: 51 Year
  Sex: Male

DRUGS (1)
  1. COPAXONE [Suspect]
     Active Substance: GLATIRAMER ACETATE

REACTIONS (5)
  - Arthropathy [None]
  - Gait disturbance [None]
  - Multiple sclerosis [None]
  - Muscular weakness [None]
  - Skin burning sensation [None]

NARRATIVE: CASE EVENT DATE: 20170517
